FAERS Safety Report 7389842-0 (Version None)
Quarter: 2011Q2

REPORT INFORMATION
  Report Type: 
  Country: None (occurrence: None)
  Receive Date: 20110401
  Receipt Date: 20110221
  Transmission Date: 20111010
  Serious: Yes (Death)
  Sender: FDA-Public Use
  Company Number: US-BAYER-2011-027981

PATIENT
  Sex: Female

DRUGS (1)
  1. ALKA-SELTZER PLUS COLD MEDICINE ORIGINAL [Suspect]
     Indication: NASOPHARYNGITIS
     Dosage: UNK

REACTIONS (1)
  - HAEMORRHAGIC STROKE [None]
